FAERS Safety Report 21401683 (Version 1)
Quarter: 2022Q3

REPORT INFORMATION
  Report Type: Spontaneous
  Country: US (occurrence: None)
  Receive Date: 20220930
  Receipt Date: 20220930
  Transmission Date: 20221027
  Serious: No
  Sender: FDA-Public Use
  Company Number: None

PATIENT
  Age: 33 Year
  Sex: Female
  Weight: 72 kg

DRUGS (1)
  1. BUPRENORPHINE\NALOXONE [Suspect]
     Active Substance: BUPRENORPHINE\NALOXONE
     Indication: Drug dependence
     Dosage: OTHER QUANTITY : 8-2 MG;?FREQUENCY : TWICE A DAY;?OTHER ROUTE : SUBLIQ;?
     Route: 060
     Dates: start: 20190402, end: 20200813

REACTIONS (1)
  - Nausea [None]
